FAERS Safety Report 9357420 (Version 2)
Quarter: 2013Q4

REPORT INFORMATION
  Report Type: Spontaneous
  Country: CA (occurrence: CA)
  Receive Date: 20130620
  Receipt Date: 20131018
  Transmission Date: 20140711
  Serious: Yes (Disabling, Other)
  Sender: FDA-Public Use
  Company Number: CA-JNJFOC-20130609188

PATIENT
  Age: 67 Year
  Sex: Male
  Weight: 77 kg

DRUGS (7)
  1. XARELTO [Suspect]
     Indication: THROMBOSIS PROPHYLAXIS
     Dosage: 10 MG ONCE
     Route: 048
     Dates: start: 20121208, end: 20121208
  2. ACETAMINOPHEN [Concomitant]
     Dosage: PRN
     Route: 065
  3. CEFAZOLIN [Concomitant]
     Route: 042
  4. CELEBREX [Concomitant]
     Route: 065
  5. CITALOPRAM [Concomitant]
     Route: 065
  6. HYDROMORPHONE [Concomitant]
     Route: 065
  7. HYDROMORPHONE [Concomitant]
     Dosage: 1-3 MG ONCE IN 3 HOURS AS NECESSARY
     Route: 065

REACTIONS (2)
  - Deep vein thrombosis [Unknown]
  - Drug ineffective [Unknown]
